FAERS Safety Report 23201937 (Version 1)
Quarter: 2023Q4

REPORT INFORMATION
  Report Type: Spontaneous
  Country: US (occurrence: US)
  Receive Date: 20231120
  Receipt Date: 20231120
  Transmission Date: 20240110
  Serious: No
  Sender: FDA-Public Use
  Company Number: US-BIOGEN-2022BI01140377

PATIENT
  Sex: Female

DRUGS (1)
  1. TYSABRI [Suspect]
     Active Substance: NATALIZUMAB
     Indication: Relapsing-remitting multiple sclerosis
     Route: 050
     Dates: start: 20200316

REACTIONS (8)
  - Product dose omission in error [Recovered/Resolved]
  - Poor venous access [Unknown]
  - Spinal pain [Unknown]
  - Tooth fracture [Unknown]
  - Balance disorder [Unknown]
  - Feeling of despair [Unknown]
  - Multiple sclerosis [Unknown]
  - Dizziness [Unknown]

NARRATIVE: CASE EVENT DATE: 20220101
